FAERS Safety Report 7571952-6 (Version None)
Quarter: 2011Q2

REPORT INFORMATION
  Report Type: 
  Country: None (occurrence: None)
  Receive Date: 20110624
  Receipt Date: 20110325
  Transmission Date: 20111010
  Serious: No
  Sender: FDA-Public Use
  Company Number: A0920070A

PATIENT
  Age: 42 Year
  Sex: Female

DRUGS (2)
  1. NO CONCURRENT MEDICATION [Concomitant]
  2. VERAMYST [Suspect]
     Dosage: 1SPR PER DAY
     Route: 045
     Dates: start: 20100801

REACTIONS (2)
  - EPISTAXIS [None]
  - NASAL CONGESTION [None]
